FAERS Safety Report 6932371-6 (Version None)
Quarter: 2010Q3

REPORT INFORMATION
  Report Type: 
  Country: None (occurrence: None)
  Receive Date: 20100817
  Receipt Date: 20100805
  Transmission Date: 20110219
  Serious: Yes (Hospitalization)
  Sender: FDA-Public Use
  Company Number: 1-18137051

PATIENT
  Age: 54 Year
  Sex: Male
  Weight: 74.8435 kg

DRUGS (12)
  1. QUININE SULFATE [Suspect]
     Indication: MUSCLE SPASMS
     Dosage: , ^AS NEEDED^, ORAL
     Route: 048
     Dates: start: 19970609, end: 20070101
  2. QUININE SULFATE 325 MG (IVAX) [Suspect]
     Indication: MUSCLE SPASMS
     Dosage: , ^AS NEEDED^, ORAL
     Route: 048
     Dates: start: 19970120, end: 20070101
  3. QUININE (NON-PRESCRIPTION) [Suspect]
     Indication: MUSCLE SPASMS
  4. COUMADIN [Concomitant]
  5. GLUCOPHAGE [Concomitant]
  6. PRINIVIL [Concomitant]
  7. DARVOCET (PROPOXYPHENE NAPSYLATE AND ACETAMINOPHEN) [Concomitant]
  8. PYRIDIUM (PHENAZOPYRIDINE) [Concomitant]
  9. ACTOS [Concomitant]
  10. ASPIRIN [Concomitant]
  11. AVANDIA [Concomitant]
  12. MULTI-VITAMIN [Concomitant]

REACTIONS (17)
  - ANAEMIA MACROCYTIC [None]
  - ANXIETY [None]
  - BLOOD DISORDER [None]
  - DIABETES MELLITUS [None]
  - DISCOMFORT [None]
  - DRUG HYPERSENSITIVITY [None]
  - FEAR [None]
  - HEART RATE INCREASED [None]
  - HYPERHIDROSIS [None]
  - IMMUNE SYSTEM DISORDER [None]
  - NERVOUSNESS [None]
  - PAIN [None]
  - PANCYTOPENIA [None]
  - PULMONARY EMBOLISM [None]
  - RESTLESS LEGS SYNDROME [None]
  - TINNITUS [None]
  - VERTIGO [None]
